FAERS Safety Report 9438344 (Version 2)
Quarter: 2013Q3

REPORT INFORMATION
  Report Type: Spontaneous
  Country: US (occurrence: US)
  Receive Date: 20130802
  Receipt Date: 20130808
  Transmission Date: 20140515
  Serious: No
  Sender: FDA-Public Use
  Company Number: US-BAXTER-2013BAX030302

PATIENT
  Age: 64 Year
  Sex: Female

DRUGS (4)
  1. GAMMAGARD LIQUID [Suspect]
     Indication: IMMUNODEFICIENCY COMMON VARIABLE
     Route: 065
     Dates: start: 20130724
  2. CYMBALTA [Concomitant]
     Indication: PRODUCT USED FOR UNKNOWN INDICATION
     Route: 048
  3. TYLENOL [Concomitant]
     Indication: PREMEDICATION
     Route: 065
  4. PREDNISONE [Concomitant]
     Indication: PREMEDICATION
     Route: 065

REACTIONS (2)
  - Urticaria [Unknown]
  - Pain in extremity [Recovered/Resolved]
